FAERS Safety Report 8550058-3 (Version None)
Quarter: 2012Q3

REPORT INFORMATION
  Report Type: 
  Country: None (occurrence: None)
  Receive Date: 20120730
  Receipt Date: 20120726
  Transmission Date: 20120928
  Serious: No
  Sender: FDA-Public Use
  Company Number: US-PFIZER INC-2012181854

PATIENT
  Sex: Male

DRUGS (2)
  1. INLYTA [Suspect]
     Indication: MALIGNANT NEOPLASM OF RENAL PELVIS
     Dosage: 5 MG, 2X/DAY
     Dates: start: 20120721
  2. PERCOCET [Suspect]
     Dosage: UNK

REACTIONS (2)
  - DYSPHONIA [None]
  - CONSTIPATION [None]
